FAERS Safety Report 7892503-2 (Version None)
Quarter: 2011Q4

REPORT INFORMATION
  Report Type: 
  Country: None (occurrence: None)
  Receive Date: 20111104
  Receipt Date: 20111031
  Transmission Date: 20120403
  Serious: Yes (Death, Other)
  Sender: FDA-Public Use
  Company Number: JP-JNJFOC-20110303136

PATIENT
  Sex: Female
  Weight: 55 kg

DRUGS (20)
  1. DOXORUBICIN HCL [Suspect]
     Route: 042
     Dates: start: 20090617, end: 20090617
  2. PREDNISOLONE [Concomitant]
     Indication: PROPHYLAXIS
     Route: 048
     Dates: start: 20090616, end: 20090618
  3. NAPROXEN [Concomitant]
     Route: 048
     Dates: start: 20090521, end: 20090624
  4. CEFAZOLIN SODIUM [Concomitant]
     Route: 048
     Dates: end: 20090624
  5. DECADRON [Concomitant]
     Indication: PROPHYLAXIS
     Route: 042
     Dates: start: 20090617, end: 20090621
  6. MAGMITT [Concomitant]
     Route: 048
     Dates: start: 20090521, end: 20090624
  7. LASIX [Concomitant]
     Route: 048
     Dates: start: 20090616, end: 20090618
  8. GLYCYRRHIZIC ACID/GLYCINE/CYSTEINE [Concomitant]
     Route: 042
     Dates: start: 20090703, end: 20090707
  9. PREDNISOLONE [Concomitant]
     Route: 048
     Dates: start: 20090619, end: 20090619
  10. FAMOTIDINE [Concomitant]
     Route: 042
     Dates: start: 20090617, end: 20090619
  11. CEFOTIAM HYDROCHLORIDE [Concomitant]
     Route: 042
     Dates: start: 20090628, end: 20090709
  12. DOXORUBICIN HCL [Suspect]
     Indication: UTERINE CANCER
     Route: 042
     Dates: start: 20090521, end: 20090521
  13. FLURBIPROFEN [Concomitant]
     Route: 042
     Dates: start: 20090626
  14. FIRSTCIN [Concomitant]
     Route: 042
     Dates: start: 20090710, end: 20090716
  15. FERROUS CITRATE [Concomitant]
     Route: 048
     Dates: end: 20090624
  16. METHYCOBAL [Concomitant]
     Route: 048
     Dates: end: 20090624
  17. NEU-UP [Concomitant]
     Route: 042
     Dates: start: 20090630, end: 20090702
  18. TIENAM [Concomitant]
     Route: 042
     Dates: start: 20090717, end: 20090723
  19. PYDOXAL [Concomitant]
     Indication: PROPHYLAXIS
     Route: 048
     Dates: start: 20090616, end: 20090622
  20. MUCOSTA [Concomitant]
     Route: 048
     Dates: end: 20090622

REACTIONS (5)
  - NEOPLASM PROGRESSION [None]
  - BONE MARROW FAILURE [None]
  - HEPATIC FUNCTION ABNORMAL [None]
  - BLOOD ALKALINE PHOSPHATASE INCREASED [None]
  - UTERINE CANCER [None]
